FAERS Safety Report 4745063-9 (Version None)
Quarter: 2005Q4

REPORT INFORMATION
  Report Type: 
  Country: None (occurrence: None)
  Receive Date: 20050812
  Receipt Date: 20050801
  Transmission Date: 20060501
  Serious: Yes (Hospitalization)
  Sender: FDA-Public Use
  Company Number: 2005110225

PATIENT
  Age: 80 Year
  Sex: Female

DRUGS (10)
  1. DOXAZOSIN [Suspect]
     Indication: ILL-DEFINED DISORDER
     Dosage: 4 MG (4 MG, DAILY),ORAL
     Route: 048
     Dates: end: 20050704
  2. AMITRIPTYLINE HYDROCHLORIDE [Suspect]
     Indication: ILL-DEFINED DISORDER
     Dosage: 10 MG (10 MG, DAILY),ORAL
     Route: 048
     Dates: end: 20050704
  3. FURSEMIDE [Suspect]
     Indication: ILL-DEFINED DISORDER
     Dosage: 80 MG (80 MG, DAILY)
     Dates: end: 20050704
  4. GLICLAZIDE [Suspect]
     Indication: ILL-DEFINED DISORDER
     Dosage: 80 MG (80 MG, DAILY)
     Dates: end: 20050704
  5. ETODOLAC [Suspect]
     Indication: ILL-DEFINED DISORDER
     Dosage: 600 MG (300 MG, BID)
     Dates: end: 20050704
  6. ASPIRIN [Concomitant]
  7. FERROUS SULFATE TAB [Concomitant]
  8. HUMAN MIXTARD (INSULIN HUMAN, INSULIN HUMAN INJECTION, ISOPHANE) [Concomitant]
  9. BETNOVATE (BETAMETHASONE) [Concomitant]
  10. EUMOVATE (CLOBETASONE BUTYRATE) [Concomitant]

REACTIONS (1)
  - DERMATITIS EXFOLIATIVE [None]
